FAERS Safety Report 11531325 (Version 1)
Quarter: 2015Q3

REPORT INFORMATION
  Report Type: Spontaneous
  Country: US (occurrence: US)
  Receive Date: 20150921
  Receipt Date: 20150921
  Transmission Date: 20151125
  Serious: Yes (Hospitalization)
  Sender: FDA-Public Use
  Company Number: US-JNJFOC-20150910049

PATIENT
  Age: 60 Year
  Sex: Male
  Weight: 81.65 kg

DRUGS (2)
  1. LOSARTAN. [Concomitant]
     Active Substance: LOSARTAN
     Indication: HYPERTENSION
     Route: 048
     Dates: start: 2005
  2. XARELTO [Suspect]
     Active Substance: RIVAROXABAN
     Indication: ANTICOAGULANT THERAPY
     Route: 048
     Dates: start: 20141215, end: 20150113

REACTIONS (3)
  - Renal cyst [Unknown]
  - Internal haemorrhage [Recovered/Resolved]
  - Renal cyst ruptured [Recovered/Resolved]

NARRATIVE: CASE EVENT DATE: 20150113
